FAERS Safety Report 7683832-6 (Version None)
Quarter: 2011Q3

REPORT INFORMATION
  Report Type: 
  Country: None (occurrence: None)
  Receive Date: 20110815
  Receipt Date: 20110808
  Transmission Date: 20111222
  Serious: Yes (Death, Other)
  Sender: FDA-Public Use
  Company Number: US-CEPHALON-2009006996

PATIENT
  Sex: Male
  Weight: 95 kg

DRUGS (3)
  1. PROVIGIL [Suspect]
     Indication: SOMNOLENCE
  2. PROVIGIL [Suspect]
     Indication: FATIGUE
  3. PROVIGIL [Suspect]
     Indication: DEPRESSION
     Route: 048
     Dates: start: 20080430

REACTIONS (4)
  - POLYSUBSTANCE DEPENDENCE [None]
  - CARDIOMEGALY [None]
  - TOXICITY TO VARIOUS AGENTS [None]
  - ARTERIOSCLEROSIS [None]
